FAERS Safety Report 24606626 (Version 1)
Quarter: 2024Q4

REPORT INFORMATION
  Report Type: Spontaneous
  Country: GB (occurrence: GB)
  Receive Date: 20241112
  Receipt Date: 20241112
  Transmission Date: 20250115
  Serious: Yes (Hospitalization, Other)
  Sender: B BRAUN
  Company Number: GB-B.Braun Medical Inc.-2164846

PATIENT

DRUGS (1)
  1. METRONIDAZOLE [Suspect]
     Active Substance: METRONIDAZOLE
     Indication: Tooth abscess

REACTIONS (15)
  - Panic attack [Unknown]
  - Photophobia [Unknown]
  - Speech disorder [Unknown]
  - Asthenia [Unknown]
  - Visual impairment [Unknown]
  - Muscle tightness [Unknown]
  - Fatigue [Unknown]
  - Headache [Unknown]
  - Arthralgia [Unknown]
  - Tremor [Unknown]
  - Hyperacusis [Unknown]
  - Depersonalisation/derealisation disorder [Unknown]
  - Brain fog [Unknown]
  - Neck pain [Unknown]
  - Derealisation [Unknown]
